FAERS Safety Report 18483738 (Version 1)
Quarter: 2020Q4

REPORT INFORMATION
  Report Type: Spontaneous
  Country: US (occurrence: US)
  Receive Date: 20201110
  Receipt Date: 20201110
  Transmission Date: 20210114
  Serious: Yes (Other)
  Sender: FDA-Public Use
  Company Number: US-SUN PHARMACEUTICAL INDUSTRIES LTD-2020R1-267193

PATIENT
  Age: 48 Year
  Sex: Male

DRUGS (2)
  1. DEXAMETHASONE. [Suspect]
     Active Substance: DEXAMETHASONE
     Indication: PRODUCT USED FOR UNKNOWN INDICATION
     Dosage: 4-6 MG DAILY
     Route: 065
  2. ALBENDAZOLE. [Suspect]
     Active Substance: ALBENDAZOLE
     Indication: PRODUCT USED FOR UNKNOWN INDICATION
     Dosage: 4-6 MG DAILY
     Route: 065

REACTIONS (1)
  - Product dose omission issue [Unknown]
